FAERS Safety Report 6125340-X (Version None)
Quarter: 2009Q1

REPORT INFORMATION
  Report Type: 
  Country: None (occurrence: None)
  Receive Date: 20090317
  Receipt Date: 20090304
  Transmission Date: 20090719
  Serious: Yes (Hospitalization)
  Sender: FDA-Public Use
  Company Number: 1-17736258

PATIENT
  Sex: Male

DRUGS (1)
  1. FLO-PRED [Suspect]
     Indication: POLYMYALGIA RHEUMATICA
     Dosage: 30 MG DAILY

REACTIONS (16)
  - ARTHRALGIA [None]
  - BACK PAIN [None]
  - BETA HAEMOLYTIC STREPTOCOCCAL INFECTION [None]
  - BLOOD CULTURE POSITIVE [None]
  - BLOOD GLUCOSE INCREASED [None]
  - BODY TEMPERATURE INCREASED [None]
  - CHILLS [None]
  - DEFORMITY [None]
  - GLUCOSE TOLERANCE IMPAIRED [None]
  - GLYCOSYLATED HAEMOGLOBIN INCREASED [None]
  - HYPERHIDROSIS [None]
  - IMMUNOSUPPRESSION [None]
  - INTERVERTEBRAL DISCITIS [None]
  - OSTEOARTHRITIS [None]
  - SWELLING [None]
  - WHITE BLOOD CELL COUNT INCREASED [None]
